FAERS Safety Report 5581649-X (Version None)
Quarter: 2008Q1

REPORT INFORMATION
  Report Type: 
  Country: None (occurrence: None)
  Receive Date: 20080102
  Receipt Date: 20080102
  Transmission Date: 20080703
  Serious: Yes (Life-Threatening, Hospitalization)
  Sender: FDA-Public Use
  Company Number: None

PATIENT
  Age: 33 Year
  Sex: Male

DRUGS (2)
  1. LORAZEPAM [Suspect]
     Indication: AGITATION
     Dosage: 2MG  ONCE  IV
     Route: 042
     Dates: start: 20071126, end: 20071126
  2. DIVALPROEX SODIUM [Suspect]
     Indication: CONVULSION
     Dosage: 1500MG BID PO
     Route: 048
     Dates: start: 20071022, end: 20071202

REACTIONS (10)
  - AGGRESSION [None]
  - AREFLEXIA [None]
  - DISORIENTATION [None]
  - DRUG INTERACTION [None]
  - DYSPNOEA [None]
  - ENCEPHALOPATHY [None]
  - IDIOSYNCRATIC DRUG REACTION [None]
  - POSTICTAL STATE [None]
  - THERAPEUTIC RESPONSE DECREASED [None]
  - UNRESPONSIVE TO STIMULI [None]
